FAERS Safety Report 23465615 (Version 2)
Quarter: 2024Q1

REPORT INFORMATION
  Report Type: Report from Study
  Country: US (occurrence: US)
  Receive Date: 20240201
  Receipt Date: 20240202
  Transmission Date: 20240410
  Serious: Yes (Other)
  Sender: FDA-Public Use
  Company Number: US-SANOFI-01916432

PATIENT
  Sex: Female

DRUGS (2)
  1. MULTAQ [Suspect]
     Active Substance: DRONEDARONE
     Indication: Atrial fibrillation
     Dosage: 0.5 DF, BID
  2. MULTAQ [Suspect]
     Active Substance: DRONEDARONE
     Dosage: 1 DF, BID

REACTIONS (6)
  - Pneumonia [Unknown]
  - Influenza [Unknown]
  - Oropharyngeal pain [Unknown]
  - Fungal infection [Unknown]
  - Diarrhoea [Unknown]
  - Wrong technique in product usage process [Unknown]
